FAERS Safety Report 21812877 (Version 1)
Quarter: 2023Q1

REPORT INFORMATION
  Report Type: Report from Study
  Country: CA (occurrence: CA)
  Receive Date: 20230103
  Receipt Date: 20230103
  Transmission Date: 20230418
  Serious: Yes (Death, Hospitalization, Other)
  Sender: FDA-Public Use
  Company Number: CA-GILEAD-2022-0605721

PATIENT
  Age: 64 Year
  Sex: Female

DRUGS (7)
  1. SACITUZUMAB GOVITECAN-HZIY [Suspect]
     Active Substance: SACITUZUMAB GOVITECAN-HZIY
     Indication: Triple negative breast cancer
     Dosage: 500 MG
     Route: 042
     Dates: start: 20221118
  2. TAXOL [Concomitant]
     Active Substance: PACLITAXEL
  3. DOXORUBICIN [Concomitant]
     Active Substance: DOXORUBICIN
  4. CAPECITABINE [Concomitant]
     Active Substance: CAPECITABINE
  5. ONDANSETRON [Concomitant]
     Active Substance: ONDANSETRON
     Dosage: 30 MG PO (PRE-MEDICATION PRIOR TO TRODELVY)
  6. ONDANSETRON [Concomitant]
     Active Substance: ONDANSETRON
     Dosage: 30 MG PO (PRE-MEDICATION PRIOR TO TRODELVY)
  7. DECADRON [Concomitant]
     Active Substance: DEXAMETHASONE
     Dosage: 8 MG PO (PRE-MEDICATION PRIOR TO TRODELVY)

REACTIONS (6)
  - Death [Fatal]
  - Infection [Recovering/Resolving]
  - Thrombocytopenia [Unknown]
  - Platelet count decreased [Unknown]
  - Haemoglobin decreased [Unknown]
  - Inappropriate schedule of product administration [Not Recovered/Not Resolved]

NARRATIVE: CASE EVENT DATE: 20221216
